FAERS Safety Report 12947629 (Version 3)
Quarter: 2016Q4

REPORT INFORMATION
  Report Type: Spontaneous
  Country: US (occurrence: US)
  Receive Date: 20161116
  Receipt Date: 20161121
  Transmission Date: 20170207
  Serious: Yes (Hospitalization, Other)
  Sender: FDA-Public Use
  Company Number: US-ALKERMES INC.-ALK-2016-003457

PATIENT
  Age: 35 Year
  Sex: Female

DRUGS (1)
  1. VIVITROL [Suspect]
     Active Substance: NALTREXONE
     Indication: ALCOHOLISM
     Dosage: 380 MG, QMO
     Route: 030
     Dates: start: 20140407

REACTIONS (5)
  - Decreased appetite [Unknown]
  - Depression [Unknown]
  - Drug dose omission [Unknown]
  - Fall [Recovered/Resolved]
  - Wrist fracture [Unknown]

NARRATIVE: CASE EVENT DATE: 2016
